FAERS Safety Report 16081320 (Version 2)
Quarter: 2019Q2

REPORT INFORMATION
  Report Type: Spontaneous
  Country: DE (occurrence: DE)
  Receive Date: 20190316
  Receipt Date: 20190402
  Transmission Date: 20190711
  Serious: Yes (Death, Life-Threatening, Other)
  Sender: FDA-Public Use
  Company Number: DE-AUROBINDO-AUR-APL-2019-013007

PATIENT

DRUGS (2)
  1. QUETIAPINE FILM-COATED TABLET [Suspect]
     Active Substance: QUETIAPINE
     Indication: RESTLESSNESS
     Dosage: 25 MILLIGRAM, UNK
     Route: 048
     Dates: start: 20190201, end: 20190220
  2. CITALOPRAM FILM-COATED TABLET [Suspect]
     Active Substance: CITALOPRAM HYDROBROMIDE
     Indication: RESTLESSNESS
     Dosage: 10 MILLIGRAM, UNK
     Route: 048
     Dates: start: 20190201, end: 20190220

REACTIONS (5)
  - Hepatic failure [Fatal]
  - Renal failure [Fatal]
  - Disturbance in attention [Recovered/Resolved with Sequelae]
  - Jaundice [Recovered/Resolved with Sequelae]
  - Hepatitis [Fatal]

NARRATIVE: CASE EVENT DATE: 20190211
